FAERS Safety Report 7349097-X (Version None)
Quarter: 2011Q1

REPORT INFORMATION
  Report Type: 
  Country: None (occurrence: None)
  Receive Date: 20110314
  Receipt Date: 20110302
  Transmission Date: 20110831
  Serious: Yes (Other)
  Sender: FDA-Public Use
  Company Number: US-CELGENEUS-163-21880-11030837

PATIENT
  Sex: Female

DRUGS (8)
  1. WELCHOL [Concomitant]
     Route: 065
  2. AMBIEN [Concomitant]
     Route: 065
  3. PEPCID [Concomitant]
     Route: 065
  4. LORAZEPAM [Concomitant]
     Route: 065
  5. TRAMADOL [Concomitant]
     Route: 065
  6. BETHANECHOL [Concomitant]
     Route: 065
  7. LEXAPRO [Concomitant]
     Route: 065
  8. REVLIMID [Suspect]
     Dosage: 10 MILLIGRAM
     Route: 048
     Dates: start: 20110216

REACTIONS (2)
  - LACERATION [None]
  - FALL [None]
